FAERS Safety Report 4899547-3 (Version None)
Quarter: 2006Q1

REPORT INFORMATION
  Report Type: 
  Country: None (occurrence: None)
  Receive Date: 20060118
  Receipt Date: 20051206
  Transmission Date: 20060701
  Serious: Yes (Other)
  Sender: FDA-Public Use
  Company Number: 2005001724

PATIENT
  Age: 43 Year
  Sex: Female

DRUGS (4)
  1. TARCEVA [Suspect]
     Indication: NON-SMALL CELL LUNG CANCER
     Dosage: 150 MG (QD), ORAL
     Route: 048
     Dates: start: 20050420, end: 20050901
  2. BACTRIM [Concomitant]
  3. ACIDOPHILUS (LACTO-BACILLUS) [Concomitant]
  4. ZOMETA [Concomitant]

REACTIONS (1)
  - INTERSTITIAL LUNG DISEASE [None]
